FAERS Safety Report 6126522-3 (Version None)
Quarter: 2009Q1

REPORT INFORMATION
  Report Type: 
  Country: None (occurrence: None)
  Receive Date: 20090320
  Receipt Date: 20090310
  Transmission Date: 20090719
  Serious: Yes (Death, Hospitalization, Disabling, Other)
  Sender: FDA-Public Use
  Company Number: US-PFIZER INC-001-0073-M0100527

PATIENT
  Sex: Female
  Weight: 68.04 kg

DRUGS (3)
  1. DILANTIN [Suspect]
     Indication: CONVULSION
     Route: 065
  2. FENTANYL-25 [Suspect]
     Route: 065
  3. PHENOBARBITAL TAB [Concomitant]
     Route: 065

REACTIONS (18)
  - ATAXIA [None]
  - BIPOLAR DISORDER [None]
  - BLINDNESS [None]
  - COMPLETED SUICIDE [None]
  - DEAFNESS [None]
  - DEPRESSION [None]
  - DISORIENTATION [None]
  - DRUG ADMINISTRATION ERROR [None]
  - DYSURIA [None]
  - GENERALISED ANXIETY DISORDER [None]
  - INTENTIONAL OVERDOSE [None]
  - OBSESSIVE-COMPULSIVE DISORDER [None]
  - POST-TRAUMATIC STRESS DISORDER [None]
  - SCHIZOPHRENIA [None]
  - THERAPEUTIC AGENT TOXICITY [None]
  - URINARY INCONTINENCE [None]
  - URINARY TRACT INFECTION [None]
  - VOMITING [None]
